FAERS Safety Report 7298419-7 (Version None)
Quarter: 2011Q1

REPORT INFORMATION
  Report Type: 
  Country: None (occurrence: None)
  Receive Date: 20110208
  Receipt Date: 20110125
  Transmission Date: 20110831
  Serious: Yes (Other)
  Sender: FDA-Public Use
  Company Number: 20110079

PATIENT
  Age: 41 Year
  Sex: Female
  Weight: 74.8435 kg

DRUGS (4)
  1. LIDOCAINE 2% WITHOUT EPINEHPRINE, [Concomitant]
  2. EPINEPHRINE [Concomitant]
  3. SALINE SOLUTION 0.9%, [Concomitant]
  4. SODIUM BICARBONATE INJECTION, USP 8.4% SODIUM BICARBONATE INJECTION, U [Suspect]
     Indication: LIPOSUCTION
     Dosage: 40 MEG IN SALINE; SUBCUTANEOUS
     Route: 058
     Dates: start: 20100521, end: 20100521

REACTIONS (5)
  - ENDOCARDITIS ENTEROCOCCAL [None]
  - SCAR [None]
  - PRODUCT QUALITY ISSUE [None]
  - OFF LABEL USE [None]
  - GRANULOMA [None]
